FAERS Safety Report 11832672 (Version 2)
Quarter: 2015Q4

REPORT INFORMATION
  Report Type: Report from Study
  Country: US (occurrence: US)
  Receive Date: 20151214
  Receipt Date: 20151215
  Transmission Date: 20160305
  Serious: No
  Sender: FDA-Public Use
  Company Number: US-AMGEN-USASL2015131107

PATIENT
  Age: 17 Year
  Sex: Female

DRUGS (1)
  1. ENBREL [Suspect]
     Active Substance: ETANERCEPT
     Indication: ANKYLOSING SPONDYLITIS
     Dosage: 50 MG, QWK
     Route: 065
     Dates: start: 2015

REACTIONS (10)
  - Lethargy [Unknown]
  - Back pain [Unknown]
  - Exercise tolerance decreased [Unknown]
  - Feeling abnormal [Unknown]
  - Arthralgia [Unknown]
  - Paraesthesia [Unknown]
  - Fibromyalgia [Unknown]
  - Insomnia [Unknown]
  - Hypoaesthesia [Unknown]
  - Fatigue [Unknown]

NARRATIVE: CASE EVENT DATE: 2015
